FAERS Safety Report 13552618 (Version 2)
Quarter: 2017Q2

REPORT INFORMATION
  Report Type: Spontaneous
  Country: FR (occurrence: FR)
  Receive Date: 20170517
  Receipt Date: 20170520
  Transmission Date: 20170830
  Serious: Yes (Hospitalization, Other)
  Sender: FDA-Public Use
  Company Number: FR-AUROBINDO-AUR-APL-2017-33862

PATIENT
  Age: 17 Year
  Sex: Female

DRUGS (2)
  1. TROPATEPINE [Suspect]
     Active Substance: TROPATEPINE
     Indication: SUICIDE ATTEMPT
     Dosage: 300 MG, UNK
     Route: 065
  2. PARACETAMOL [Suspect]
     Active Substance: ACETAMINOPHEN
     Indication: SUICIDE ATTEMPT
     Dosage: 8 G, UNK
     Route: 065

REACTIONS (8)
  - Mydriasis [Recovered/Resolved]
  - Overdose [Recovered/Resolved]
  - Agitation [Recovered/Resolved]
  - Hyperthermia [Recovered/Resolved]
  - Hypertonia [Recovered/Resolved]
  - Suicide attempt [Recovered/Resolved]
  - Tachycardia [Recovered/Resolved]
  - Confusional state [Recovered/Resolved]
